FAERS Safety Report 13999558 (Version 6)
Quarter: 2018Q4

REPORT INFORMATION
  Report Type: Spontaneous
  Country: JP (occurrence: JP)
  Receive Date: 20170922
  Receipt Date: 20181228
  Transmission Date: 20190204
  Serious: Yes (Other)
  Sender: FDA-Public Use
  Company Number: JP-NOVOPROD-563723

PATIENT
  Age: 2 Year
  Sex: Male
  Weight: 13.5 kg

DRUGS (4)
  1. NOVOEIGHT [Suspect]
     Active Substance: ANTIHEMOPHILIC FACTOR, HUMAN RECOMBINANT
     Indication: FACTOR VIII DEFICIENCY
     Dosage: UNK
     Route: 042
     Dates: start: 201709
  2. NOVOEIGHT [Suspect]
     Active Substance: ANTIHEMOPHILIC FACTOR, HUMAN RECOMBINANT
     Indication: IMMUNE TOLERANCE INDUCTION
     Dosage: 1000 IU, QD
     Route: 042
     Dates: start: 20170201
  3. ADVATE [Suspect]
     Active Substance: ANTIHEMOPHILIC FACTOR, HUMAN RECOMBINANT
     Indication: PRODUCT USED FOR UNKNOWN INDICATION
     Dosage: UNK
     Route: 065
  4. NOVOEIGHT [Suspect]
     Active Substance: ANTIHEMOPHILIC FACTOR, HUMAN RECOMBINANT
     Indication: HAEMORRHAGE

REACTIONS (2)
  - Anti factor VIII antibody increased [Unknown]
  - Off label use [Unknown]

NARRATIVE: CASE EVENT DATE: 2017
